FAERS Safety Report 14964706 (Version 13)
Quarter: 2019Q3

REPORT INFORMATION
  Report Type: Spontaneous
  Country: JP (occurrence: JP)
  Receive Date: 20180601
  Receipt Date: 20190913
  Transmission Date: 20191004
  Serious: Yes (Hospitalization, Disabling, Other)
  Sender: FDA-Public Use
  Company Number: JP-PFM-2018-02667

PATIENT

DRUGS (4)
  1. HEMANGIOL [Suspect]
     Active Substance: PROPRANOLOL HYDROCHLORIDE
     Dosage: 2 MG/KG/DAY
     Route: 048
     Dates: start: 20170113, end: 20170114
  2. HEMANGIOL [Suspect]
     Active Substance: PROPRANOLOL HYDROCHLORIDE
     Dosage: 3 MG/KG/DAY
     Route: 048
     Dates: start: 20180115
  3. HEMANGIOL [Suspect]
     Active Substance: PROPRANOLOL HYDROCHLORIDE
     Dosage: 2 MG/KG/DAY
     Route: 048
     Dates: end: 20180223
  4. HEMANGIOL [Suspect]
     Active Substance: PROPRANOLOL HYDROCHLORIDE
     Indication: INFANTILE HAEMANGIOMA
     Dosage: 1 MG/KG/DAY AFTER BREAKFAST AND DINNER
     Route: 048
     Dates: start: 20170110, end: 20170112

REACTIONS (9)
  - Drug titration error [Unknown]
  - Pyrexia [Recovered/Resolved]
  - Hypoglycaemia [Recovered/Resolved with Sequelae]
  - Femur fracture [Recovered/Resolved]
  - Off label use [Unknown]
  - Hypoglycaemic seizure [Recovered/Resolved with Sequelae]
  - Nasopharyngitis [Unknown]
  - Product use issue [Unknown]
  - Hypoglycaemic encephalopathy [Recovered/Resolved with Sequelae]

NARRATIVE: CASE EVENT DATE: 2017
